FAERS Safety Report 12237475 (Version 1)
Quarter: 2016Q2

REPORT INFORMATION
  Report Type: Spontaneous
  Country: None (occurrence: None)
  Receive Date: 20160404
  Receipt Date: 20160404
  Transmission Date: 20160815
  Serious: Yes (Life-Threatening, Disabling, Other)
  Sender: FDA-Public Use
  Company Number: None

PATIENT
  Age: 48 Year
  Sex: Female
  Weight: 68 kg

DRUGS (7)
  1. NEXIUM [Concomitant]
     Active Substance: ESOMEPRAZOLE MAGNESIUM
  2. LYRICA [Suspect]
     Active Substance: PREGABALIN
     Indication: NEURALGIA
     Route: 048
  3. CALCIUM WITH VITAMIND D SUPPLEMENT [Concomitant]
  4. IRON SUPPLEMENT [Concomitant]
     Active Substance: IRON
  5. MERSYNDOL FORTE [Concomitant]
  6. FEXOFENADINE [Concomitant]
     Active Substance: FEXOFENADINE\FEXOFENADINE HYDROCHLORIDE
  7. THYROXINE [Concomitant]
     Active Substance: LEVOTHYROXINE

REACTIONS (44)
  - Alopecia [None]
  - Somnolence [None]
  - Pyrexia [None]
  - Mass [None]
  - Transient ischaemic attack [None]
  - Suicidal ideation [None]
  - Abnormal dreams [None]
  - Decreased appetite [None]
  - Nausea [None]
  - Fatigue [None]
  - Tooth disorder [None]
  - Arthralgia [None]
  - Gingival ulceration [None]
  - Tic [None]
  - Anxiety [None]
  - Skin disorder [None]
  - Violence-related symptom [None]
  - Incontinence [None]
  - Constipation [None]
  - Dry eye [None]
  - Dry mouth [None]
  - Headache [None]
  - Myalgia [None]
  - Mouth ulceration [None]
  - Feeling of body temperature change [None]
  - Cognitive disorder [None]
  - Tremor [None]
  - Weight increased [None]
  - Peripheral swelling [None]
  - Muscle spasms [None]
  - Pain in extremity [None]
  - Skin exfoliation [None]
  - Sexual dysfunction [None]
  - Muscle atrophy [None]
  - Abdominal distension [None]
  - Asthenia [None]
  - Pruritus [None]
  - Rash [None]
  - Muscle twitching [None]
  - Withdrawal syndrome [None]
  - Gastrointestinal disorder [None]
  - Eye swelling [None]
  - Swelling face [None]
  - Formication [None]

NARRATIVE: CASE EVENT DATE: 20140428
